FAERS Safety Report 9315174 (Version 1)
Quarter: 2013Q2

REPORT INFORMATION
  Report Type: Spontaneous
  Country: US (occurrence: US)
  Receive Date: 20130529
  Receipt Date: 20130529
  Transmission Date: 20140414
  Serious: No
  Sender: FDA-Public Use
  Company Number: US-PFIZER INC-2004057520

PATIENT
  Sex: Male

DRUGS (3)
  1. IBUPROFEN [Suspect]
     Indication: MYALGIA
     Dosage: 400 MG, 2 IN 1 DAY (IN THE AM AND THE PM EVERY DAY)
     Route: 048
     Dates: start: 20040503
  2. CENTRUM [Suspect]
     Indication: VITAMIN SUPPLEMENTATION
     Dosage: 1 DF, 1X/DAY
     Route: 048
     Dates: start: 200404
  3. VITAMIN E [Suspect]
     Indication: VITAMIN SUPPLEMENTATION
     Dosage: 1 DF, ONCE A DAY
     Route: 048
     Dates: start: 200404

REACTIONS (2)
  - Pain [Unknown]
  - Condition aggravated [Unknown]
